FAERS Safety Report 9827412 (Version 1)
Quarter: 2013Q4

REPORT INFORMATION
  Report Type: Spontaneous
  Country: US (occurrence: None)
  Receive Date: 20131115
  Receipt Date: 20131115
  Transmission Date: 20140711
  Serious: Yes (Hospitalization, Other)
  Sender: FDA-Public Use
  Company Number: 2012P1067379

PATIENT
  Age: 71 Year
  Sex: Male

DRUGS (2)
  1. INFUMORPH [Suspect]
  2. BACLOFEN INTRATHECAL 200 MCG/ML [Suspect]

REACTIONS (1)
  - Overdose [None]
